FAERS Safety Report 6021240-4 (Version None)
Quarter: 2008Q4

REPORT INFORMATION
  Report Type: 
  Country: None (occurrence: None)
  Receive Date: 20081222
  Receipt Date: 20081014
  Transmission Date: 20090506
  Serious: Yes (Hospitalization)
  Sender: FDA-Public Use
  Company Number: US200810003209

PATIENT
  Age: 78 Year
  Sex: Female

DRUGS (4)
  1. HUMALOG [Suspect]
  2. LANTUS [Concomitant]
  3. NOVOLOG [Concomitant]
  4. LEVEMIR [Concomitant]

REACTIONS (4)
  - BLOOD GLUCOSE INCREASED [None]
  - DRUG INEFFECTIVE [None]
  - EYE DISORDER [None]
  - FEAR [None]
